FAERS Safety Report 5471702-3 (Version None)
Quarter: 2007Q3

REPORT INFORMATION
  Report Type: 
  Country: None (occurrence: None)
  Receive Date: 20070928
  Receipt Date: 20070410
  Transmission Date: 20080115
  Serious: No
  Sender: FDA-Public Use
  Company Number: US-BRISTOL-MYERS SQUIBB COMPANY-13743828

PATIENT
  Sex: Male
  Weight: 135 kg

DRUGS (6)
  1. DEFINITY [Suspect]
     Indication: ULTRASOUND SCAN
     Route: 042
  2. OMEGA 3 FISH OIL [Concomitant]
  3. ASPIRIN [Concomitant]
  4. TOPROL-XL [Concomitant]
  5. LISINOPRIL [Concomitant]
  6. CADUET [Concomitant]

REACTIONS (2)
  - ABASIA [None]
  - LIMB DISCOMFORT [None]
